FAERS Safety Report 6899880-X (Version None)
Quarter: 2010Q3

REPORT INFORMATION
  Report Type: 
  Country: None (occurrence: None)
  Receive Date: 20100803
  Receipt Date: 20100727
  Transmission Date: 20110219
  Serious: Yes (Other)
  Sender: FDA-Public Use
  Company Number: CO-ASTRAZENECA-2010SE29993

PATIENT
  Age: 82 Year
  Sex: Male

DRUGS (4)
  1. SYMBICORT [Suspect]
     Indication: CHRONIC OBSTRUCTIVE PULMONARY DISEASE
     Dosage: 2 INHALATIONS/BID
     Route: 055
     Dates: start: 20070101, end: 20100614
  2. LOSARTAN POSTASSIUM [Concomitant]
     Indication: HYPERTENSION
     Route: 048
     Dates: end: 20100614
  3. HYDROCHLOROTHIAZIDE [Concomitant]
     Indication: HYPERTENSION
     Route: 048
  4. LORAZEPAM [Concomitant]
     Indication: INSOMNIA
     Route: 048

REACTIONS (1)
  - HEPATIC ENZYME INCREASED [None]
